FAERS Safety Report 7970682-6 (Version None)
Quarter: 2011Q4

REPORT INFORMATION
  Report Type: 
  Country: None (occurrence: None)
  Receive Date: 20111212
  Receipt Date: 20111207
  Transmission Date: 20120403
  Serious: Yes (Hospitalization, Other)
  Sender: FDA-Public Use
  Company Number: GXKR2011DE003543

PATIENT

DRUGS (3)
  1. FEMIBION [Concomitant]
     Dosage: MATERNAL DOSE: 0.4 MG, DAILY
     Route: 064
  2. VENLAFAXINE [Suspect]
     Dosage: MATERNAL DOSE: 37.5 MG DAILY
  3. VENLAFAXINE [Suspect]
     Dosage: MATERNAL DOSE: 75 MG DAILY
     Route: 064

REACTIONS (3)
  - FOETAL EXPOSURE DURING PREGNANCY [None]
  - WITHDRAWAL SYNDROME [None]
  - HEART RATE DECREASED [None]
